FAERS Safety Report 12748752 (Version 1)
Quarter: 2016Q3

REPORT INFORMATION
  Report Type: Report from Study
  Country: ES (occurrence: ES)
  Receive Date: 20160915
  Receipt Date: 20160915
  Transmission Date: 20161109
  Serious: Yes (Other)
  Sender: FDA-Public Use
  Company Number: ES-PFIZER INC-2016424025

PATIENT
  Age: 25 Year
  Sex: Female

DRUGS (8)
  1. MASTICAL [Concomitant]
     Indication: HYPOCALCAEMIA
     Dosage: 2-0-2
     Route: 048
     Dates: start: 2014
  2. TAZOCEL [Suspect]
     Active Substance: PIPERACILLIN SODIUM\TAZOBACTAM SODIUM
     Indication: PYELONEPHRITIS
     Dosage: 4 G, 3X/DAY
     Route: 042
     Dates: start: 20150303, end: 20150306
  3. LANTUS [Concomitant]
     Active Substance: INSULIN GLARGINE
     Indication: DIABETES MELLITUS
     Dosage: 12 IU, 1X/DAY, 0-0-12
     Route: 058
     Dates: start: 2014
  4. DACORTIN [Concomitant]
     Active Substance: PREDNISONE
     Indication: RHEUMATOID ARTHRITIS
     Dosage: 5 MG, 1X/DAY, 1-0-0
     Route: 048
     Dates: start: 20131105
  5. METOJECT [Concomitant]
     Active Substance: METHOTREXATE SODIUM
     Indication: RHEUMATOID ARTHRITIS
     Dosage: 15 MG, UNK
     Route: 058
     Dates: start: 20130611, end: 20150306
  6. CIMZIA [Concomitant]
     Active Substance: CERTOLIZUMAB PEGOL
     Indication: RHEUMATOID ARTHRITIS
     Dosage: 1 INYECCION SC
     Route: 058
     Dates: start: 20131105
  7. HIDROFEROL [Concomitant]
     Active Substance: CALCIFEDIOL
     Indication: HYPOVITAMINOSIS
     Dosage: 1 EVERY 15 DAYS
     Route: 048
     Dates: start: 2014
  8. APIDRA [Concomitant]
     Active Substance: INSULIN GLULISINE
     Indication: DIABETES MELLITUS
     Dosage: 4.66667 IU, 3X/DAY, 2-8-4
     Route: 058
     Dates: start: 2014

REACTIONS (1)
  - Cholestasis [Recovered/Resolved]

NARRATIVE: CASE EVENT DATE: 20150305
